FAERS Safety Report 5375203-2 (Version None)
Quarter: 2007Q2

REPORT INFORMATION
  Report Type: 
  Country: None (occurrence: None)
  Receive Date: 20070629
  Receipt Date: 20061214
  Transmission Date: 20071010
  Serious: No
  Sender: FDA-Public Use
  Company Number: US-ASTRAZENECA-2006UW20715

PATIENT
  Age: 69 Year
  Sex: Female
  Weight: 49 kg

DRUGS (5)
  1. TAMOXIFEN CITRATE [Suspect]
     Indication: BREAST CANCER
     Route: 048
     Dates: start: 20060401, end: 20060701
  2. TAMOXIFEN CITRATE [Suspect]
     Route: 048
     Dates: start: 20060530
  3. ARIMIDEX [Concomitant]
     Indication: BREAST CANCER
     Route: 048
  4. ACTONEL [Concomitant]
  5. KEFLEX [Concomitant]

REACTIONS (2)
  - HEMIPARESIS [None]
  - MUSCLE TIGHTNESS [None]
